FAERS Safety Report 9694566 (Version 5)
Quarter: 2014Q2

REPORT INFORMATION
  Report Type: Spontaneous
  Country: US (occurrence: US)
  Receive Date: 20131118
  Receipt Date: 20140415
  Transmission Date: 20141212
  Serious: Yes (Hospitalization)
  Sender: FDA-Public Use
  Company Number: US-009507513-1311USA004165

PATIENT
  Age: 62 Year
  Sex: Female

DRUGS (4)
  1. PEGINTRON [Suspect]
     Indication: HEPATITIS C
     Dosage: 0.5 CC, QW REDIPEN
     Route: 058
     Dates: start: 20131101
  2. REBETOL [Suspect]
     Indication: HEPATITIS C
     Dosage: 400 MG, BID
     Route: 048
     Dates: start: 20131101
  3. TELAPREVIR [Suspect]
     Indication: HEPATITIS C
     Dosage: 2250MG, TID
     Route: 048
     Dates: start: 20131101
  4. CARVEDILOL [Concomitant]
     Dosage: DAILY

REACTIONS (7)
  - Ankle fracture [Unknown]
  - Fall [Unknown]
  - Fatigue [Unknown]
  - Vomiting [Unknown]
  - Decreased appetite [Unknown]
  - Asthenia [Unknown]
  - Lower limb fracture [Unknown]
